FAERS Safety Report 7770954-4 (Version None)
Quarter: 2011Q3

REPORT INFORMATION
  Report Type: 
  Country: None (occurrence: None)
  Receive Date: 20110922
  Receipt Date: 20110111
  Transmission Date: 20111222
  Serious: No
  Sender: FDA-Public Use
  Company Number: US-ASTRAZENECA-2011SE02259

PATIENT
  Age: 38 Year
  Sex: Female
  Weight: 80.7 kg

DRUGS (8)
  1. SEROQUEL [Suspect]
     Route: 048
  2. SEROQUEL [Suspect]
     Indication: BIPOLAR DISORDER
     Route: 048
  3. PROZAC [Concomitant]
  4. SEROQUEL [Suspect]
     Route: 048
  5. SEROQUEL [Suspect]
     Indication: TACHYPHRENIA
     Route: 048
  6. SEROQUEL [Suspect]
     Indication: MAJOR DEPRESSION
     Route: 048
  7. LAMICTAL [Concomitant]
  8. SEROQUEL [Suspect]
     Route: 048

REACTIONS (1)
  - NASOPHARYNGITIS [None]
